FAERS Safety Report 18132697 (Version 1)
Quarter: 2020Q3

REPORT INFORMATION
  Report Type: Report from Study
  Country: HK (occurrence: HK)
  Receive Date: 20200811
  Receipt Date: 20200811
  Transmission Date: 20201103
  Serious: Yes (Other)
  Sender: FDA-Public Use
  Company Number: HK-ACCORD-194786

PATIENT

DRUGS (4)
  1. APREPITANT. [Concomitant]
     Active Substance: APREPITANT
     Dosage: EVERY 3 WEEKS FOR THREE CYCLES
  2. CISPLATIN. [Suspect]
     Active Substance: CISPLATIN
     Indication: BLADDER CANCER
  3. DEXAMETHASONE. [Concomitant]
     Active Substance: DEXAMETHASONE
     Dosage: EVERY 3 WEEKS FOR THREE CYCLES
  4. GEMCITABINE/GEMCITABINE HYDROCHLORIDE [Suspect]
     Active Substance: GEMCITABINE\GEMCITABINE HYDROCHLORIDE
     Indication: BLADDER CANCER

REACTIONS (2)
  - Mucosal inflammation [Recovered/Resolved]
  - Renal impairment [Recovered/Resolved]
